FAERS Safety Report 26048819 (Version 2)
Quarter: 2025Q4

REPORT INFORMATION
  Report Type: Report from Study
  Country: CA (occurrence: CA)
  Receive Date: 20251115
  Receipt Date: 20251127
  Transmission Date: 20260117
  Serious: Yes (Hospitalization)
  Sender: ABBVIE
  Company Number: CA-ABBVIE-6543315

PATIENT
  Age: 38 Year
  Sex: Female

DRUGS (3)
  1. RINVOQ [Suspect]
     Active Substance: UPADACITINIB
     Indication: Crohn^s disease
     Dosage: FORM STRENGTH: 30MILLIGRAM
     Route: 048
     Dates: start: 20230508
  2. ETHINYL ESTRADIOL\NORGESTIMATE [Concomitant]
     Active Substance: ETHINYL ESTRADIOL\NORGESTIMATE
     Indication: Product used for unknown indication
  3. MUPIROCIN [Concomitant]
     Active Substance: MUPIROCIN
     Indication: Product used for unknown indication
     Route: 065

REACTIONS (11)
  - Endometriosis [Unknown]
  - Abdominal distension [Recovered/Resolved]
  - Skin lesion [Unknown]
  - Abdominal wall disorder [Unknown]
  - Diarrhoea [Recovered/Resolved]
  - Abdominal tenderness [Unknown]
  - Endometritis [Unknown]
  - Abdominal mass [Recovered/Resolved]
  - Abdominal wall mass [Unknown]
  - Abdominal pain [Unknown]
  - Scar [Unknown]

NARRATIVE: CASE EVENT DATE: 20250301
